FAERS Safety Report 24635874 (Version 4)
Quarter: 2025Q3

REPORT INFORMATION
  Report Type: Spontaneous
  Country: US (occurrence: US)
  Receive Date: 20241119
  Receipt Date: 20250820
  Transmission Date: 20251020
  Serious: No
  Sender: CATALYST PHARMA
  Company Number: US-CATALYST PHARMACEUTICALS-US-CATA-24-00973

PATIENT
  Age: 6 Year
  Sex: Male
  Weight: 25.31 kg

DRUGS (10)
  1. AGAMREE [Suspect]
     Active Substance: VAMOROLONE
     Indication: Duchenne muscular dystrophy
     Dosage: 3.7 ML DAILY
     Route: 048
     Dates: start: 20240621, end: 2024
  2. AGAMREE [Suspect]
     Active Substance: VAMOROLONE
     Dosage: 2.7 ML DAILY
     Route: 048
     Dates: start: 2024, end: 2024
  3. AGAMREE [Suspect]
     Active Substance: VAMOROLONE
     Dosage: 2.5 ML DAILY
     Route: 048
     Dates: start: 2024
  4. AGAMREE [Suspect]
     Active Substance: VAMOROLONE
     Dosage: 3ML ONCE A DAY
     Route: 048
     Dates: start: 20240703, end: 202503
  5. AGAMREE [Suspect]
     Active Substance: VAMOROLONE
     Dosage: 2.5 ML ONCE A DAY
     Route: 048
     Dates: start: 202503
  6. VITAMINS [Concomitant]
     Active Substance: VITAMINS
     Indication: Hypovitaminosis
     Dosage: ONCE A DAY
     Route: 065
  7. VITAMIN D3 [Concomitant]
     Active Substance: CHOLECALCIFEROL
     Indication: Hypovitaminosis
     Dosage: 5000 UNITS ONCE A DAY
     Route: 065
  8. MELATONIN [Concomitant]
     Active Substance: MELATONIN
     Indication: Insomnia
     Dosage: 1 MG AT BEDTIME
     Route: 065
  9. HERBALS\TURMERIC [Concomitant]
     Active Substance: HERBALS\TURMERIC
     Indication: Duchenne muscular dystrophy
     Dosage: 250 MG DAILY
     Route: 065
  10. CETIRIZINE [Concomitant]
     Active Substance: CETIRIZINE HYDROCHLORIDE
     Indication: Product used for unknown indication
     Dosage: 5 MG DAILY
     Route: 048
     Dates: start: 20241113

REACTIONS (7)
  - Anger [Recovering/Resolving]
  - Condition aggravated [Recovering/Resolving]
  - Mood swings [Recovering/Resolving]
  - Emotional disorder [Recovering/Resolving]
  - Condition aggravated [Recovering/Resolving]
  - Affective disorder [Not Recovered/Not Resolved]
  - Intentional product use issue [Unknown]

NARRATIVE: CASE EVENT DATE: 20240701
